FAERS Safety Report 7915025-9 (Version None)
Quarter: 2011Q4

REPORT INFORMATION
  Report Type: 
  Country: None (occurrence: None)
  Receive Date: 20111115
  Receipt Date: 20101104
  Transmission Date: 20120403
  Serious: No
  Sender: FDA-Public Use
  Company Number: US-AMGEN-TCS394691

PATIENT
  Age: 57 Year
  Sex: Female

DRUGS (3)
  1. ENBREL [Suspect]
     Dates: start: 20091008, end: 20100916
  2. METHOTREXATE [Concomitant]
     Dosage: 25 MG, QWK
     Route: 048
  3. ENBREL [Suspect]
     Dosage: 50 MG, QWK
     Route: 058
     Dates: start: 20091008, end: 20100916

REACTIONS (4)
  - INJECTION SITE ERYTHEMA [None]
  - PNEUMONIA PRIMARY ATYPICAL [None]
  - ARTHRITIS [None]
  - PSORIASIS [None]
